FAERS Safety Report 9155876 (Version 1)
Quarter: 2013Q1

REPORT INFORMATION
  Report Type: Spontaneous
  Country: US (occurrence: US)
  Receive Date: 20130311
  Receipt Date: 20130311
  Transmission Date: 20140127
  Serious: Yes (Other)
  Sender: FDA-Public Use
  Company Number: US-US-EMD SERONO, INC.-232328K07USA

PATIENT
  Sex: Female
  Weight: 75 kg

DRUGS (4)
  1. REBIF [Suspect]
     Indication: MULTIPLE SCLEROSIS
     Route: 058
     Dates: start: 20021216
  2. REBIF [Suspect]
     Route: 058
     Dates: start: 2010
  3. TYLENOL [Concomitant]
  4. FOLIC ACID [Concomitant]

REACTIONS (2)
  - Rheumatoid arthritis [Recovering/Resolving]
  - Liver function test abnormal [Unknown]
